FAERS Safety Report 12197699 (Version 1)
Quarter: 2016Q1

REPORT INFORMATION
  Report Type: Spontaneous
  Country: AR (occurrence: AR)
  Receive Date: 20160322
  Receipt Date: 20160322
  Transmission Date: 20160526
  Serious: Yes (Other)
  Sender: FDA-Public Use
  Company Number: AR-ROCHE-1720627

PATIENT
  Age: 32 Year
  Sex: Female
  Weight: 55 kg

DRUGS (3)
  1. ACIFOL (ARGENTINA) [Concomitant]
     Route: 065
  2. FLU VACCINE [Concomitant]
     Active Substance: INFLUENZA VIRUS VACCINE
  3. XOLAIR [Suspect]
     Active Substance: OMALIZUMAB
     Indication: ASTHMA
     Route: 065
     Dates: start: 200612, end: 201510

REACTIONS (6)
  - Upper respiratory tract infection [Recovered/Resolved]
  - Pregnancy on oral contraceptive [Unknown]
  - Vulvovaginal candidiasis [Unknown]
  - Maternal exposure during pregnancy [Unknown]
  - Gastritis [Recovering/Resolving]
  - Vomiting [Recovering/Resolving]

NARRATIVE: CASE EVENT DATE: 20151123
